FAERS Safety Report 6551626-0 (Version None)
Quarter: 2010Q1

REPORT INFORMATION
  Report Type: 
  Country: None (occurrence: None)
  Receive Date: 20100126
  Receipt Date: 20100119
  Transmission Date: 20100710
  Serious: No
  Sender: FDA-Public Use
  Company Number: US-B.I. PHARMACEUTICALS,INC./RIDGEFIELD-2010-BP-00700BP

PATIENT
  Sex: Female

DRUGS (1)
  1. ZANTAC 150 [Suspect]
     Indication: GASTROOESOPHAGEAL REFLUX DISEASE
     Route: 048
     Dates: start: 20090501, end: 20100118

REACTIONS (5)
  - ABDOMINAL PAIN [None]
  - ABNORMAL FAECES [None]
  - DIARRHOEA [None]
  - FAECES DISCOLOURED [None]
  - MELAENA [None]
